FAERS Safety Report 8023582-X (Version None)
Quarter: 2012Q1

REPORT INFORMATION
  Report Type: 
  Country: None (occurrence: None)
  Receive Date: 20120105
  Receipt Date: 20111230
  Transmission Date: 20120608
  Serious: Yes (Hospitalization)
  Sender: FDA-Public Use
  Company Number: US-BRISTOL-MYERS SQUIBB COMPANY-16323388

PATIENT
  Age: 69 Year
  Sex: Female
  Weight: 73 kg

DRUGS (2)
  1. VELCADE [Suspect]
     Indication: MULTIPLE MYELOMA
     Dosage: DURATION:1 MINUTE PUSH STRENGTH:1.3MG/M2 1 DF:2.4 UNITS NOS
     Route: 042
     Dates: start: 20110527, end: 20111207
  2. CYTOXAN [Suspect]
     Indication: MULTIPLE MYELOMA
     Dosage: STRNGTH:300MG/M2 DURATION:30 MINS
     Route: 042
     Dates: start: 20110601, end: 20111130

REACTIONS (2)
  - SYNCOPE [None]
  - DEHYDRATION [None]
